FAERS Safety Report 4681061-1 (Version None)
Quarter: 2005Q2

REPORT INFORMATION
  Report Type: 
  Country: None (occurrence: None)
  Receive Date: 20050601
  Receipt Date: 20050524
  Transmission Date: 20051028
  Serious: Yes (Hospitalization, Other)
  Sender: FDA-Public Use
  Company Number: 2005079261

PATIENT
  Age: 53 Year
  Sex: Female
  Weight: 65.7716 kg

DRUGS (10)
  1. GLUCOTROL XL [Suspect]
     Indication: DIABETES MELLITUS NON-INSULIN-DEPENDENT
     Dosage: 2.5 MG (2.5 MG,1 IN 1 D),ORAL
     Route: 048
     Dates: start: 19990401
  2. ENALAPRIL MALEATE [Concomitant]
  3. GLUCOPHAGE [Concomitant]
  4. ATENOLOL [Concomitant]
  5. DIAZEPAM [Concomitant]
  6. RANITIDINE HYDROCHLORIDE [Concomitant]
  7. DOXEPIN HCL [Concomitant]
  8. PRAVACHOL [Concomitant]
  9. HYDROXYZINE PAMOATE [Concomitant]
  10. RHINOCORT [Concomitant]

REACTIONS (2)
  - ARTERIAL OCCLUSIVE DISEASE [None]
  - DIABETIC COMPLICATION [None]
